FAERS Safety Report 8824620 (Version 2)
Quarter: 2012Q4

REPORT INFORMATION
  Report Type: 
  Country: CA (occurrence: CA)
  Receive Date: 20121004
  Receipt Date: 20121111
  Transmission Date: 20130627
  Serious: Yes (Other)
  Sender: FDA-Public Use
  Company Number: PHHY2012CA085836

PATIENT
  Sex: Male

DRUGS (1)
  1. SANDOSTATIN LAR [Suspect]
     Indication: ACROMEGALY
     Dosage: 20 mg, once monthly
     Route: 030
     Dates: start: 20091230, end: 20120901

REACTIONS (4)
  - Prostate cancer [Unknown]
  - General physical health deterioration [Unknown]
  - Malaise [Unknown]
  - Headache [Unknown]
